FAERS Safety Report 4907219-1 (Version None)
Quarter: 2006Q1

REPORT INFORMATION
  Report Type: 
  Country: None (occurrence: None)
  Receive Date: 20060207
  Receipt Date: 20060119
  Transmission Date: 20060701
  Serious: Yes (Hospitalization)
  Sender: FDA-Public Use
  Company Number: US200512004317

PATIENT
  Age: 68 Year
  Sex: Female

DRUGS (3)
  1. FORTEO [Suspect]
     Indication: OSTEOPOROSIS
     Dosage: 20 ?G, DAILY (1/D)
     Dates: start: 20050601
  2. FORTEO PEN (FOETEO PEN) [Concomitant]
  3. PEN, DISPOSABLE [Concomitant]

REACTIONS (7)
  - BRONCHITIS ACUTE [None]
  - CHRONIC OBSTRUCTIVE PULMONARY DISEASE [None]
  - CLOSTRIDIUM COLITIS [None]
  - DEHYDRATION [None]
  - HYPERTENSION [None]
  - LOSS OF CONSCIOUSNESS [None]
  - URINARY TRACT INFECTION [None]
